FAERS Safety Report 9143003 (Version 4)
Quarter: 2013Q2

REPORT INFORMATION
  Report Type: Report from Study
  Country: CZ (occurrence: CZ)
  Receive Date: 20130306
  Receipt Date: 20130517
  Transmission Date: 20140414
  Serious: Yes (Life-Threatening, Hospitalization)
  Sender: FDA-Public Use
  Company Number: CZ-NOVOPROD-372221

PATIENT
  Age: 66 Year
  Sex: Male
  Weight: 80.5 kg

DRUGS (2)
  1. LIRAGLUTIDE FLEXPEN [Suspect]
     Indication: TYPE 2 DIABETES MELLITUS
     Dosage: 0.6 MG, QD
     Route: 058
     Dates: start: 20111116, end: 20130228
  2. LIRAGLUTIDE FLEXPEN [Suspect]
     Dosage: 0.6 MG, QD
     Route: 058
     Dates: start: 20130315

REACTIONS (3)
  - Coronary revascularisation [Recovered/Resolved]
  - Acute coronary syndrome [Recovered/Resolved]
  - Coronary revascularisation [Recovered/Resolved]
